FAERS Safety Report 4412079-1 (Version None)
Quarter: 2004Q3

REPORT INFORMATION
  Report Type: 
  Country: None (occurrence: None)
  Receive Date: 20040730
  Receipt Date: 20040422
  Transmission Date: 20050211
  Serious: Yes (Other)
  Sender: FDA-Public Use
  Company Number: US-GLAXOSMITHKLINE-A0508072A

PATIENT
  Sex: Male

DRUGS (1)
  1. STELAZINE [Suspect]
     Indication: SCHIZOPHRENIA
     Route: 048
     Dates: start: 19671201, end: 19680301

REACTIONS (4)
  - ANXIETY [None]
  - FEAR [None]
  - INSOMNIA [None]
  - SUICIDAL IDEATION [None]
